FAERS Safety Report 5855062-1 (Version None)
Quarter: 2008Q3

REPORT INFORMATION
  Report Type: 
  Country: None (occurrence: None)
  Receive Date: 20080822
  Receipt Date: 20080611
  Transmission Date: 20090109
  Serious: No
  Sender: FDA-Public Use
  Company Number: US-ABBOTT-08P-163-0456500-00

PATIENT
  Sex: Female
  Weight: 59.02 kg

DRUGS (3)
  1. SYNTHROID [Suspect]
     Indication: HYPOTHYROIDISM
     Route: 048
     Dates: start: 20080316
  2. SYNTHROID [Suspect]
     Dosage: GENERIC
     Dates: end: 20080315
  3. MULTI-VITAMIN [Concomitant]
     Indication: DRUG USE FOR UNKNOWN INDICATION

REACTIONS (4)
  - ALOPECIA [None]
  - BLOOD THYROID STIMULATING HORMONE ABNORMAL [None]
  - FATIGUE [None]
  - WEIGHT INCREASED [None]
